FAERS Safety Report 21720384 (Version 1)
Quarter: 2022Q4

REPORT INFORMATION
  Report Type: Spontaneous
  Country: TH (occurrence: TH)
  Receive Date: 20221213
  Receipt Date: 20221213
  Transmission Date: 20230112
  Serious: No
  Sender: FDA-Public Use
  Company Number: TH-ALKEM LABORATORIES LIMITED-TH-ALKEM-2022-07586

PATIENT

DRUGS (1)
  1. MYCOPHENOLATE MOFETIL [Suspect]
     Active Substance: MYCOPHENOLATE MOFETIL
     Indication: Neuromyelitis optica spectrum disorder
     Dosage: MEDIAN MAINTENANCE DOSE OF 1250 MILLIGRAM PER DAY (54 MG/KG/DAY OR 743.4 MG/M2/DAY)
     Route: 065

REACTIONS (1)
  - Lymphopenia [Unknown]
